FAERS Safety Report 11993321 (Version 1)
Quarter: 2016Q1

REPORT INFORMATION
  Report Type: Spontaneous
  Country: US (occurrence: None)
  Receive Date: 20160202
  Receipt Date: 20160202
  Transmission Date: 20160526
  Serious: Yes (Hospitalization)
  Sender: FDA-Public Use
  Company Number: None

PATIENT
  Age: 82 Year
  Sex: Male
  Weight: 70 kg

DRUGS (1)
  1. WARFARIN [Suspect]
     Active Substance: WARFARIN
     Indication: ATRIAL FIBRILLATION
     Route: 048
     Dates: start: 20120315, end: 20160122

REACTIONS (4)
  - Anaemia [None]
  - Abdominal wall haematoma [None]
  - Haemorrhage [None]
  - Scrotal haematoma [None]

NARRATIVE: CASE EVENT DATE: 20160122
